FAERS Safety Report 11225067 (Version 2)
Quarter: 2015Q3

REPORT INFORMATION
  Report Type: Spontaneous
  Country: RO (occurrence: RO)
  Receive Date: 20150629
  Receipt Date: 20150727
  Transmission Date: 20151125
  Serious: Yes (Death, Hospitalization)
  Sender: FDA-Public Use
  Company Number: RO-CELGENE-ROU-2015064305

PATIENT
  Age: 69 Year
  Sex: Male

DRUGS (11)
  1. AZACITIDINE. [Suspect]
     Active Substance: AZACITIDINE
     Route: 058
     Dates: end: 201504
  2. PLATELET [Concomitant]
     Indication: PRODUCT USED FOR UNKNOWN INDICATION
     Route: 041
  3. RED BLOOD CELLS [Concomitant]
     Active Substance: HUMAN RED BLOOD CELL
     Indication: PRODUCT USED FOR UNKNOWN INDICATION
     Route: 041
  4. AZACITIDINE. [Suspect]
     Active Substance: AZACITIDINE
     Indication: MYELODYSPLASTIC SYNDROME
     Route: 058
     Dates: start: 201411
  5. BISEPTOL [Concomitant]
     Active Substance: SULFAMETHOXAZOLE\TRIMETHOPRIM
     Indication: PRODUCT USED FOR UNKNOWN INDICATION
     Route: 065
  6. METRONIDAZOLE. [Concomitant]
     Active Substance: METRONIDAZOLE
     Indication: SEPSIS
     Dosage: 9 MILLILITER
     Route: 048
     Dates: start: 20150325, end: 20150425
  7. VANCOMYCIN [Concomitant]
     Active Substance: VANCOMYCIN
     Indication: PNEUMONITIS
     Dosage: 2 GRAM
     Route: 041
     Dates: start: 20150317, end: 20150321
  8. VFEND [Concomitant]
     Active Substance: VORICONAZOLE
     Indication: SEPSIS
     Dosage: 3 GRAM
     Route: 041
     Dates: start: 20150402, end: 20150425
  9. COLISTIN [Concomitant]
     Active Substance: COLISTIN
     Indication: SEPSIS
     Dosage: 400 MILLIGRAM
     Route: 041
     Dates: start: 20150402, end: 20150421
  10. PERFALGAN [Concomitant]
     Active Substance: ACETAMINOPHEN
     Indication: PYREXIA
     Route: 041
     Dates: start: 20150317, end: 20150324
  11. MERONEM [Concomitant]
     Active Substance: MEROPENEM
     Indication: PNEUMONITIS
     Dosage: 2 GRAM
     Route: 041
     Dates: start: 20150317, end: 20150324

REACTIONS (2)
  - Pneumonia [Unknown]
  - Septic shock [Fatal]

NARRATIVE: CASE EVENT DATE: 20150421
